FAERS Safety Report 8772970 (Version 1)
Quarter: 2012Q4

REPORT INFORMATION
  Report Type: 
  Country: FR (occurrence: FR)
  Receive Date: 20120907
  Receipt Date: 20120907
  Transmission Date: 20130627
  Serious: Yes (Hospitalization)
  Sender: FDA-Public Use
  Company Number: PHHY2012FR077179

PATIENT
  Sex: Female

DRUGS (7)
  1. VOLTARENE [Suspect]
     Dates: end: 20120717
  2. PREVISCAN [Suspect]
     Dosage: 0.5 DF daily
     Route: 048
     Dates: end: 20120717
  3. PREVISCAN [Suspect]
     Dosage: 0.25 DF daily
     Route: 048
     Dates: end: 20120717
  4. ESOMEPRAZOLE [Concomitant]
  5. LOPRIL [Concomitant]
     Dosage: 25 mg, UNK
  6. TAHOR [Concomitant]
     Dosage: 10 mg, UNK
  7. LEXOMIL [Concomitant]

REACTIONS (6)
  - Haematoma [Recovering/Resolving]
  - Mobility decreased [Unknown]
  - Fall [Unknown]
  - Injury [Unknown]
  - Arthralgia [Unknown]
  - Anaemia macrocytic [Recovering/Resolving]
